FAERS Safety Report 4717507-X (Version None)
Quarter: 2005Q3

REPORT INFORMATION
  Report Type: 
  Country: None (occurrence: None)
  Receive Date: 20050715
  Receipt Date: 20050705
  Transmission Date: 20060218
  Serious: Yes (Other)
  Sender: FDA-Public Use
  Company Number: S05-USA-03464-01

PATIENT
  Age: 72 Year
  Sex: Female

DRUGS (1)
  1. TIAZAC [Suspect]
     Dates: start: 20020701

REACTIONS (1)
  - STEVENS-JOHNSON SYNDROME [None]
